FAERS Safety Report 8740177 (Version 2)
Quarter: 2012Q4

REPORT INFORMATION
  Report Type: 
  Country: BE (occurrence: BE)
  Receive Date: 20120823
  Receipt Date: 20120928
  Transmission Date: 20130627
  Serious: Yes (Hospitalization)
  Sender: FDA-Public Use
  Company Number: BE-009507513-1208BEL007797

PATIENT
  Age: 61 Year
  Sex: Female
  Weight: 50 kg

DRUGS (3)
  1. PEGINTRON [Suspect]
     Indication: HEPATITIS C
     Dosage: 100 Microgram, qw
     Dates: start: 20120319, end: 20120731
  2. REBETOL [Suspect]
     Indication: HEPATITIS C
     Dosage: UNK UNK, bid
     Dates: start: 20120319, end: 20120731
  3. VICTRELIS [Suspect]
     Indication: HEPATITIS C
     Dosage: UNK UNK, tid
     Dates: start: 20120417, end: 20120731

REACTIONS (11)
  - Anaemia [Recovered/Resolved]
  - Vomiting [Recovered/Resolved]
  - Streptococcal infection [Recovered/Resolved]
  - Tonsillitis [Recovered/Resolved]
  - Dehydration [Recovered/Resolved]
  - Nasal obstruction [Recovered/Resolved]
  - Oropharyngeal pain [Recovered/Resolved]
  - Condition aggravated [Recovered/Resolved]
  - Pyrexia [Recovered/Resolved]
  - Fatigue [Recovered/Resolved]
  - Food intolerance [Recovered/Resolved]
